FAERS Safety Report 5154241-9 (Version None)
Quarter: 2006Q4

REPORT INFORMATION
  Report Type: 
  Country: None (occurrence: None)
  Receive Date: 20061114
  Receipt Date: 20061030
  Transmission Date: 20070319
  Serious: Yes (Life-Threatening, Hospitalization, Other)
  Sender: FDA-Public Use
  Company Number: GXKR2006GB06930

PATIENT
  Age: 84 Year
  Sex: Female
  Weight: 57 kg

DRUGS (6)
  1. ASPIRIN [Suspect]
     Dosage: 150 MG, ORAL
     Route: 048
     Dates: start: 20051101, end: 20060601
  2. CLOPIDOGREL [Suspect]
     Dosage: 75 MG, ORAL
     Route: 048
     Dates: start: 20051101, end: 20060503
  3. BISOPROLOL FUMARATE [Concomitant]
  4. FUROSEMIDE [Concomitant]
  5. SIMVASTATIN [Concomitant]
  6. TRANDOLAPRIL [Concomitant]

REACTIONS (3)
  - DUODENAL ULCER HAEMORRHAGE [None]
  - GASTRIC ULCER [None]
  - SYNCOPE [None]
